FAERS Safety Report 13449569 (Version 1)
Quarter: 2017Q2

REPORT INFORMATION
  Report Type: Spontaneous
  Country: IT (occurrence: IT)
  Receive Date: 20170417
  Receipt Date: 20170417
  Transmission Date: 20170830
  Serious: Yes (Other)
  Sender: FDA-Public Use
  Company Number: PHHY2017IT053890

PATIENT
  Age: 39 Year
  Sex: Male

DRUGS (1)
  1. AMOXICILLIN. [Suspect]
     Active Substance: AMOXICILLIN
     Indication: PHARYNGITIS
     Dosage: 2 G, QD
     Route: 048
     Dates: start: 20170325, end: 20170330

REACTIONS (2)
  - Rash [Recovering/Resolving]
  - Pruritus [Recovering/Resolving]

NARRATIVE: CASE EVENT DATE: 20170329
